FAERS Safety Report 21405145 (Version 6)
Quarter: 2024Q3

REPORT INFORMATION
  Report Type: Spontaneous
  Country: US (occurrence: US)
  Receive Date: 20221004
  Receipt Date: 20240814
  Transmission Date: 20241017
  Serious: Yes (Hospitalization, Other)
  Sender: GLAXOSMITHKLINE
  Company Number: US-GLAXOSMITHKLINE-US2022139266

PATIENT

DRUGS (4)
  1. ZEJULA [Suspect]
     Active Substance: NIRAPARIB
     Indication: Ovarian cancer
     Dosage: 100 MG, QD
     Route: 048
     Dates: start: 20220912
  2. ZEJULA [Suspect]
     Active Substance: NIRAPARIB
     Dosage: 200 MG, QD
  3. ZEJULA [Suspect]
     Active Substance: NIRAPARIB
     Indication: Ovarian cancer
     Dosage: 100 MG, QD
  4. ZEJULA [Suspect]
     Active Substance: NIRAPARIB
     Dosage: 200 MG, QD
     Route: 048

REACTIONS (21)
  - Hospitalisation [Unknown]
  - Cerebrovascular accident [Unknown]
  - Cerebral haemorrhage [Unknown]
  - Dehydration [Unknown]
  - Blood potassium increased [Unknown]
  - Urinary tract infection [Unknown]
  - Coronavirus infection [Unknown]
  - Stoma complication [Unknown]
  - Back pain [Unknown]
  - Renal disorder [Unknown]
  - Memory impairment [Unknown]
  - Headache [Unknown]
  - Blood pressure decreased [Unknown]
  - Nausea [Unknown]
  - Pain in extremity [Unknown]
  - Decreased activity [Unknown]
  - Arthralgia [Unknown]
  - Dysphonia [Unknown]
  - Pain [Unknown]
  - Off label use [Unknown]
  - Product dose omission issue [Unknown]

NARRATIVE: CASE EVENT DATE: 20220901
